FAERS Safety Report 9165976 (Version 5)
Quarter: 2013Q2

REPORT INFORMATION
  Report Type: Report from Study
  Country: FR (occurrence: FR)
  Receive Date: 20130315
  Receipt Date: 20130611
  Transmission Date: 20140414
  Serious: Yes (Hospitalization)
  Sender: FDA-Public Use
  Company Number: FR-ROCHE-1198175

PATIENT
  Age: 55 Year
  Sex: Female
  Weight: 59 kg

DRUGS (10)
  1. PERTUZUMAB [Suspect]
     Indication: OVARIAN CANCER
     Dosage: LOADING DOSE
     Route: 042
     Dates: start: 20130122
  2. PERTUZUMAB [Suspect]
     Dosage: MAINTANANCE DOSE, LAST DOSE PRIOR TO SAE 13/FEB/2013
     Route: 042
  3. TOPOTECAN [Suspect]
     Indication: OVARIAN CANCER
     Dosage: LAST DOSE PRIOR TO SAE: 17/FEB/2013
     Route: 042
     Dates: start: 20130122
  4. INNOHEP [Concomitant]
     Route: 065
     Dates: start: 20121217
  5. PANCREATINE [Concomitant]
     Route: 065
     Dates: start: 20120411
  6. INOSINUM [Concomitant]
     Route: 065
     Dates: start: 201006
  7. ALPRAZOLAM [Concomitant]
     Route: 065
     Dates: start: 20121221
  8. SKENAN LP [Concomitant]
     Route: 065
     Dates: start: 20121221
  9. ACTISKENAN [Concomitant]
     Route: 065
     Dates: start: 20121221
  10. EFFERALGAN [Concomitant]
     Route: 065
     Dates: start: 201211

REACTIONS (1)
  - Hypokalaemia [Recovered/Resolved]
